FAERS Safety Report 5312203-2 (Version None)
Quarter: 2007Q2

REPORT INFORMATION
  Report Type: 
  Country: None (occurrence: None)
  Receive Date: 20070430
  Receipt Date: 20060823
  Transmission Date: 20071010
  Serious: No
  Sender: FDA-Public Use
  Company Number: 2006UW16752

PATIENT
  Sex: Male

DRUGS (2)
  1. NEXIUM [Suspect]
     Indication: GASTROOESOPHAGEAL REFLUX DISEASE
     Route: 048
     Dates: start: 20060701
  2. ALTACE [Concomitant]

REACTIONS (2)
  - BLOOD IRON DECREASED [None]
  - SERUM FERRITIN DECREASED [None]
